FAERS Safety Report 7517301-0 (Version None)
Quarter: 2011Q2

REPORT INFORMATION
  Report Type: 
  Country: None (occurrence: None)
  Receive Date: 20110601
  Receipt Date: 20110525
  Transmission Date: 20111010
  Serious: Yes (Other)
  Sender: FDA-Public Use
  Company Number: DE-PFIZER INC-2011076067

PATIENT

DRUGS (2)
  1. ZYVOX [Suspect]
     Indication: INFECTION
     Dosage: 1200 MG DAILY
     Route: 042
  2. INSULIN [Concomitant]
     Indication: INFECTION
     Route: 050

REACTIONS (1)
  - HYPERGLYCAEMIA [None]
